FAERS Safety Report 5321143-4 (Version None)
Quarter: 2007Q2

REPORT INFORMATION
  Report Type: 
  Country: None (occurrence: None)
  Receive Date: 20070504
  Receipt Date: 20070426
  Transmission Date: 20071010
  Serious: Yes (Hospitalization)
  Sender: FDA-Public Use
  Company Number: S07-USA-01764-01

PATIENT
  Age: 39 Year
  Sex: Female
  Weight: 204.1187 kg

DRUGS (9)
  1. CELEXA [Suspect]
     Indication: DEPRESSION
     Dosage: 80 MG QHS PO
     Route: 048
     Dates: end: 20070419
  2. LASIX [Concomitant]
  3. PRINIVIL [Concomitant]
  4. CATAPRES [Concomitant]
  5. COLACE (DOCUSATE SODIUM) [Concomitant]
  6. PEPCID [Concomitant]
  7. PERCOCET [Concomitant]
  8. PHENERGAN [Concomitant]
  9. TYLENOL [Concomitant]

REACTIONS (3)
  - ABSCESS [None]
  - CELLULITIS [None]
  - RENAL FAILURE [None]
